FAERS Safety Report 4510515-3 (Version None)
Quarter: 2004Q4

REPORT INFORMATION
  Report Type: 
  Country: None (occurrence: None)
  Receive Date: 20041122
  Receipt Date: 20041117
  Transmission Date: 20050328
  Serious: Yes (Other)
  Sender: FDA-Public Use
  Company Number: 235381K04USA

PATIENT
  Age: 59 Year
  Sex: Male

DRUGS (14)
  1. REBIF [Suspect]
     Indication: MULTIPLE SCLEROSIS
  2. LIPITOR [Concomitant]
  3. TRICOR [Concomitant]
  4. MIPAX (DIMETHYL PHTHALATE) [Concomitant]
  5. ADVAIR DISKUS 100/50 [Concomitant]
  6. ALLEGRA [Concomitant]
  7. XANAX [Concomitant]
  8. ELAVIL [Concomitant]
  9. COREG [Concomitant]
  10. COZAAR [Concomitant]
  11. DITROPAN XL [Concomitant]
  12. HYZAAR [Concomitant]
  13. ZOLOFT [Concomitant]
  14. POTASSIUM (POTASSIUM) [Concomitant]

REACTIONS (9)
  - BLOOD CHOLESTEROL INCREASED [None]
  - CYSTITIS RADIATION [None]
  - DIZZINESS [None]
  - FATIGUE [None]
  - HALLUCINATION [None]
  - HEADACHE [None]
  - PROCTALGIA [None]
  - PROSTATE CANCER [None]
  - RECTAL HAEMORRHAGE [None]
